FAERS Safety Report 5318928-7 (Version None)
Quarter: 2007Q2

REPORT INFORMATION
  Report Type: 
  Country: None (occurrence: None)
  Receive Date: 20070503
  Receipt Date: 20070503
  Transmission Date: 20071010
  Serious: Yes (Other)
  Sender: FDA-Public Use
  Company Number: None

PATIENT
  Age: 64 Year
  Sex: Female

DRUGS (1)
  1. HYDROXYCHLOROQUINE TABS 698; 200MG; WATSON [Suspect]
     Indication: RHEUMATOID ARTHRITIS
     Dosage: TAKE 1 TABLET TWICE A DAY

REACTIONS (3)
  - DYSGEUSIA [None]
  - PHARMACEUTICAL PRODUCT COMPLAINT [None]
  - THROAT IRRITATION [None]
